FAERS Safety Report 19371221 (Version 3)
Quarter: 2021Q4

REPORT INFORMATION
  Report Type: Report from Study
  Country: KR (occurrence: KR)
  Receive Date: 20210604
  Receipt Date: 20211127
  Transmission Date: 20220303
  Serious: Yes (Other)
  Sender: FDA-Public Use
  Company Number: KR-KYOWAKIRIN-2021AKK009439

PATIENT

DRUGS (23)
  1. FILGRASTIM [Suspect]
     Active Substance: FILGRASTIM
     Indication: Product used for unknown indication
     Dosage: UNK
     Route: 065
     Dates: start: 20120625, end: 20121016
  2. AZACITIDINE [Concomitant]
     Active Substance: AZACITIDINE
     Indication: Product used for unknown indication
     Dosage: 1.65 UNK
     Dates: start: 20120625, end: 20121125
  3. ACYCLOVIR [Concomitant]
     Active Substance: ACYCLOVIR
     Indication: Product used for unknown indication
     Dosage: UNK
     Dates: start: 20120709, end: 20120924
  4. ANAGRELIDE [Concomitant]
     Active Substance: ANAGRELIDE
     Indication: Product used for unknown indication
     Dosage: UNK
     Dates: start: 20120829, end: 20121106
  5. ANAGRELIDE [Concomitant]
     Active Substance: ANAGRELIDE
     Dosage: UNK
     Dates: start: 20121119, end: 20121202
  6. ANAGRELIDE [Concomitant]
     Active Substance: ANAGRELIDE
     Dosage: UNK
     Dates: start: 20121203
  7. BENPROPERINE [Concomitant]
     Active Substance: BENPROPERINE
     Indication: Product used for unknown indication
     Dosage: UNK
     Dates: start: 20121002, end: 20121007
  8. BROMHEXINE [Concomitant]
     Active Substance: BROMHEXINE
     Indication: Product used for unknown indication
     Dosage: UNK
     Dates: start: 20121002, end: 20121007
  9. CHLORPHENIRAMINE MALEATE [Concomitant]
     Active Substance: CHLORPHENIRAMINE MALEATE
     Indication: Product used for unknown indication
     Dosage: UNK
     Dates: start: 20120723, end: 20121119
  10. CIPROFLOXACIN [Concomitant]
     Active Substance: CIPROFLOXACIN
     Indication: Product used for unknown indication
     Dosage: UNK
     Dates: start: 20120709, end: 20121203
  11. FLUCONAZOLE [Concomitant]
     Active Substance: FLUCONAZOLE
     Indication: Product used for unknown indication
     Dosage: UNK
     Dates: start: 20120709, end: 20121203
  12. FOLIC ACID [Concomitant]
     Active Substance: FOLIC ACID
     Indication: Product used for unknown indication
     Dosage: UNK
     Dates: start: 20120625, end: 20121119
  13. FUROSEMIDE [Concomitant]
     Active Substance: FUROSEMIDE
     Indication: Product used for unknown indication
     Dosage: UNK
     Dates: start: 20120917, end: 20121106
  14. GRANISETRON [Concomitant]
     Active Substance: GRANISETRON
     Indication: Product used for unknown indication
     Dosage: UNK
     Dates: start: 20120625, end: 20121119
  15. HERBALS\PLANTAGO OVATA SEED [Concomitant]
     Active Substance: HERBALS\PLANTAGO OVATA SEED
     Indication: Product used for unknown indication
     Dosage: UNK
     Dates: start: 20121119, end: 20121125
  16. LACTULOSE [Concomitant]
     Active Substance: LACTULOSE
     Indication: Product used for unknown indication
     Dosage: UNK
     Dates: start: 20120709, end: 20120924
  17. MAGNESIUM OXIDE [Concomitant]
     Active Substance: MAGNESIUM OXIDE
     Indication: Product used for unknown indication
     Dosage: UNK
     Dates: start: 20121119, end: 20121126
  18. METOCLOPRAMIDE [Concomitant]
     Active Substance: METOCLOPRAMIDE
     Indication: Product used for unknown indication
     Dosage: UNK
     Dates: start: 20120625, end: 20120705
  19. METOCLOPRAMIDE [Concomitant]
     Active Substance: METOCLOPRAMIDE
     Dosage: UNK
     Dates: start: 20120723, end: 20121126
  20. MEPERIDINE [Concomitant]
     Active Substance: MEPERIDINE
     Indication: Product used for unknown indication
     Dosage: UNK
     Dates: start: 20121008, end: 20121008
  21. CALCIUM POLYCARBOPHIL [Concomitant]
     Active Substance: CALCIUM POLYCARBOPHIL
     Indication: Product used for unknown indication
     Dosage: UNK
     Dates: start: 20121105, end: 20121126
  22. SULTAMICILLIN [Concomitant]
     Active Substance: SULTAMICILLIN
     Indication: Product used for unknown indication
     Dosage: UNK
     Dates: start: 20120925, end: 20121105
  23. TRAMADOL [Concomitant]
     Active Substance: TRAMADOL
     Indication: Product used for unknown indication
     Dosage: UNK
     Dates: start: 20120829, end: 20120926

REACTIONS (11)
  - Anal injury [Recovered/Resolved]
  - Decreased appetite [Recovered/Resolved]
  - Haemorrhoids [Recovered/Resolved]
  - Rhinorrhoea [Recovered/Resolved]
  - Lymphadenopathy [Recovered/Resolved]
  - Thrombocytosis [Not Recovered/Not Resolved]
  - Asthenia [Recovered/Resolved]
  - Oedema peripheral [Recovered/Resolved]
  - Pyrexia [Recovered/Resolved]
  - Arthralgia [Recovered/Resolved]
  - Oedema peripheral [Recovered/Resolved]

NARRATIVE: CASE EVENT DATE: 20120625
